FAERS Safety Report 7904744-6 (Version None)
Quarter: 2011Q4

REPORT INFORMATION
  Report Type: 
  Country: None (occurrence: None)
  Receive Date: 20111109
  Receipt Date: 20111108
  Transmission Date: 20120403
  Serious: Yes (Other)
  Sender: FDA-Public Use
  Company Number: US-TEVA-308297USA

PATIENT

DRUGS (2)
  1. FENOFIBRATE [Suspect]
  2. ATORVASTATIN CALCIUM [Suspect]

REACTIONS (1)
  - ANAPHYLACTIC REACTION [None]
